FAERS Safety Report 7676644-0 (Version None)
Quarter: 2011Q3

REPORT INFORMATION
  Report Type: 
  Country: None (occurrence: None)
  Receive Date: 20110811
  Receipt Date: 20110802
  Transmission Date: 20111222
  Serious: Yes (Hospitalization)
  Sender: FDA-Public Use
  Company Number: US-BAYER-201023007NA

PATIENT
  Age: 37 Year
  Sex: Female
  Weight: 77.098 kg

DRUGS (10)
  1. FLUOXETINE [Concomitant]
     Indication: DEPRESSION
     Dosage: 10 MG, QD
     Dates: start: 20030701, end: 20071101
  2. YASMIN [Suspect]
     Indication: CONTRACEPTION
     Dosage: UNK UNK, QD
     Route: 048
     Dates: start: 20011207, end: 20060701
  3. PROZAC [Concomitant]
  4. COLD MEDICINE [Concomitant]
  5. YASMIN [Suspect]
     Indication: PREMENSTRUAL SYNDROME
  6. TYLENOL-500 [Concomitant]
  7. PLAVIX [Concomitant]
     Dosage: 75 MG, QD
  8. AZITHROMYCIN [Concomitant]
     Indication: SINUSITIS
  9. SUDAFED 12 HOUR [Concomitant]
  10. YASMIN [Suspect]
     Indication: ACNE

REACTIONS (12)
  - THERMOANAESTHESIA [None]
  - PANIC ATTACK [None]
  - ANXIETY [None]
  - OEDEMA PERIPHERAL [None]
  - APHASIA [None]
  - DISTURBANCE IN ATTENTION [None]
  - CEREBRAL INFARCTION [None]
  - HYPOAESTHESIA [None]
  - SPEECH DISORDER [None]
  - SENSORY LOSS [None]
  - MOTOR DYSFUNCTION [None]
  - CONFUSIONAL STATE [None]
